FAERS Safety Report 7700429-X (Version None)
Quarter: 2011Q3

REPORT INFORMATION
  Report Type: 
  Country: None (occurrence: None)
  Receive Date: 20110822
  Receipt Date: 20110817
  Transmission Date: 20111222
  Serious: Yes (Hospitalization)
  Sender: FDA-Public Use
  Company Number: US-GILEAD-2011-0042590

PATIENT
  Sex: Female

DRUGS (1)
  1. LETAIRIS [Suspect]
     Indication: PULMONARY HYPERTENSION
     Route: 048
     Dates: start: 20110602

REACTIONS (4)
  - DEHYDRATION [None]
  - ANAEMIA [None]
  - PULMONARY ARTERIAL HYPERTENSION [None]
  - RENAL DISORDER [None]
